FAERS Safety Report 11008607 (Version 2)
Quarter: 2015Q2

REPORT INFORMATION
  Report Type: Spontaneous
  Country: US (occurrence: None)
  Receive Date: 20150408
  Receipt Date: 20150422
  Transmission Date: 20150821
  Serious: Yes (Other)
  Sender: FDA-Public Use
  Company Number: NXG-15-001

PATIENT
  Sex: Male

DRUGS (1)
  1. PEG 527GM [Suspect]
     Active Substance: POLYETHYLENE GLYCOL 3500
     Indication: CONSTIPATION
     Dates: start: 200302, end: 201502

REACTIONS (4)
  - Anorectal discomfort [None]
  - Drug dependence [None]
  - Proctalgia [None]
  - Dermatitis contact [None]
